FAERS Safety Report 14138690 (Version 7)
Quarter: 2018Q3

REPORT INFORMATION
  Report Type: Spontaneous
  Country: JP (occurrence: JP)
  Receive Date: 20171027
  Receipt Date: 20180720
  Transmission Date: 20181010
  Serious: Yes (Death, Hospitalization, Other)
  Sender: FDA-Public Use
  Company Number: JP-BRISTOL-MYERS SQUIBB COMPANY-BMS-2017-094550

PATIENT
  Age: 77 Year
  Sex: Male
  Weight: 53.6 kg

DRUGS (5)
  1. YERVOY [Suspect]
     Active Substance: IPILIMUMAB
     Indication: PRODUCT USED FOR UNKNOWN INDICATION
     Dosage: 156.3 MG, UNK
     Route: 041
     Dates: start: 20170908, end: 20170908
  2. YERVOY [Suspect]
     Active Substance: IPILIMUMAB
     Indication: MALIGNANT MELANOMA
     Dosage: 156.3 MG, UNK
     Route: 041
     Dates: start: 20170707, end: 20170707
  3. YERVOY [Suspect]
     Active Substance: IPILIMUMAB
     Indication: PRODUCT USED FOR UNKNOWN INDICATION
     Dosage: 156.3 MG, UNK
     Route: 041
     Dates: start: 20170818, end: 20170818
  4. OPDIVO [Suspect]
     Active Substance: NIVOLUMAB
     Indication: MALIGNANT MELANOMA
     Dosage: 3 MG/KG, UNK
     Route: 041
     Dates: start: 20161104, end: 2017
  5. YERVOY [Suspect]
     Active Substance: IPILIMUMAB
     Indication: PRODUCT USED FOR UNKNOWN INDICATION
     Dosage: 156.3 MG, UNK
     Route: 041
     Dates: start: 20170728, end: 20170728

REACTIONS (6)
  - Disseminated intravascular coagulation [Unknown]
  - Hypothyroidism [Not Recovered/Not Resolved]
  - Lymphadenopathy [Unknown]
  - Autoimmune hepatitis [Fatal]
  - Subacute hepatic failure [Unknown]
  - Malignant neoplasm progression [Fatal]

NARRATIVE: CASE EVENT DATE: 20170623
